FAERS Safety Report 12930636 (Version 2)
Quarter: 2016Q4

REPORT INFORMATION
  Report Type: Spontaneous
  Country: US (occurrence: US)
  Receive Date: 20161110
  Receipt Date: 20161227
  Transmission Date: 20170207
  Serious: Yes (Hospitalization)
  Sender: FDA-Public Use
  Company Number: US-JNJFOC-20161100326

PATIENT
  Age: 61 Year
  Sex: Male
  Weight: 90.72 kg

DRUGS (3)
  1. XARELTO [Suspect]
     Active Substance: RIVAROXABAN
     Indication: CEREBROVASCULAR ACCIDENT PROPHYLAXIS
     Route: 048
     Dates: start: 201605, end: 20161012
  2. DILANTIN [Interacting]
     Active Substance: PHENYTOIN
     Indication: SEIZURE
     Dosage: 1982 OR 1983 TO CURRENT
     Route: 065
  3. XARELTO [Suspect]
     Active Substance: RIVAROXABAN
     Indication: ATRIAL FIBRILLATION
     Route: 048
     Dates: start: 201605, end: 20161012

REACTIONS (4)
  - Drug interaction [Unknown]
  - Blood pressure increased [Not Recovered/Not Resolved]
  - High frequency ablation [Unknown]
  - Blood magnesium decreased [Not Recovered/Not Resolved]

NARRATIVE: CASE EVENT DATE: 201610
